FAERS Safety Report 17835005 (Version 2)
Quarter: 2020Q3

REPORT INFORMATION
  Report Type: Spontaneous
  Country: PT (occurrence: PT)
  Receive Date: 20200528
  Receipt Date: 20200703
  Transmission Date: 20201103
  Serious: Yes (Hospitalization, Other)
  Sender: FDA-Public Use
  Company Number: PT-ACCORD-183447

PATIENT
  Age: 50 Year
  Sex: Female

DRUGS (5)
  1. ALPRAZOLAM. [Suspect]
     Active Substance: ALPRAZOLAM
     Indication: PSYCHIATRIC DECOMPENSATION
     Dosage: 0.5 MILLIGRAM, BID
     Route: 048
  2. METHYLPREDNISOLONE. [Concomitant]
     Active Substance: METHYLPREDNISOLONE
     Indication: IMMUNOSUPPRESSANT DRUG THERAPY
     Dosage: UNK
     Dates: start: 20170712
  3. SERTRALINE [Suspect]
     Active Substance: SERTRALINE HYDROCHLORIDE
     Indication: PSYCHIATRIC DECOMPENSATION
     Dosage: 50 MILLIGRAM, QD STRENGTH: 50 MG
  4. CHLORPROMAZINE. [Concomitant]
     Active Substance: CHLORPROMAZINE
     Dosage: UNK
     Route: 030
  5. ACICLOVIR [Concomitant]
     Active Substance: ACYCLOVIR
     Dosage: UNK
     Dates: start: 201706

REACTIONS (12)
  - Psychomotor hyperactivity [Not Recovered/Not Resolved]
  - Condition aggravated [Recovering/Resolving]
  - Paraneoplastic encephalomyelitis [Unknown]
  - Dysphoria [Not Recovered/Not Resolved]
  - Pulmonary embolism [Not Recovered/Not Resolved]
  - Psychomotor skills impaired [Recovering/Resolving]
  - Thymoma [Not Recovered/Not Resolved]
  - Anhedonia [Recovered/Resolved]
  - Disorientation [Not Recovered/Not Resolved]
  - Apathy [Recovered/Resolved]
  - Aggression [Not Recovered/Not Resolved]
  - Psychomotor retardation [Recovered/Resolved]

NARRATIVE: CASE EVENT DATE: 2017
